FAERS Safety Report 9250302 (Version 2)
Quarter: 2016Q3

REPORT INFORMATION
  Report Type: Spontaneous
  Country: US (occurrence: US)
  Receive Date: 20130424
  Receipt Date: 20160708
  Transmission Date: 20161109
  Serious: Yes (Hospitalization)
  Sender: FDA-Public Use
  Company Number: US-RANBAXY-2013US-67960

PATIENT
  Age: 20 Year
  Sex: Male

DRUGS (2)
  1. ACETAMINOPHEN AND CODEINE [Suspect]
     Active Substance: ACETAMINOPHEN\CODEINE PHOSPHATE
     Indication: OROPHARYNGEAL PAIN
     Dosage: 1 DF, Q2H
     Route: 048
  2. PENICILLIN G BENZATHINE [Concomitant]
     Active Substance: PENICILLIN G BENZATHINE
     Indication: OROPHARYNGEAL PAIN
     Dosage: UNK
     Route: 065

REACTIONS (4)
  - Hallucination, auditory [Recovered/Resolved]
  - Hallucination, visual [Recovered/Resolved]
  - Substance-induced psychotic disorder [Recovered/Resolved]
  - Paranoia [Recovered/Resolved]
